FAERS Safety Report 15380604 (Version 1)
Quarter: 2018Q4

REPORT INFORMATION
  Report Type: Spontaneous
  Country: US (occurrence: US)
  Receive Date: 20180913
  Receipt Date: 20180913
  Transmission Date: 20190204
  Serious: Yes (Death, Hospitalization, Other)
  Sender: FDA-Public Use
  Company Number: US-PFIZER INC-001-0945-M0101301

PATIENT
  Age: 58 Year
  Sex: Male

DRUGS (11)
  1. BENZTROPINE. [Suspect]
     Active Substance: BENZTROPINE
     Dosage: 2 MG, 2X/DAY
     Route: 048
  2. CLONAZEPAM. [Suspect]
     Active Substance: CLONAZEPAM
     Dosage: 0.5 MG, 3X/DAY
     Route: 048
  3. NORTRIPTYLINE [Suspect]
     Active Substance: NORTRIPTYLINE
     Dosage: UNK
  4. FLUOXETINE [Suspect]
     Active Substance: FLUOXETINE HYDROCHLORIDE
     Dosage: UNK
  5. CLOMIPRAMINE [Suspect]
     Active Substance: CLOMIPRAMINE
     Dosage: 25 MG, 1X/DAY AT NIGHT
     Route: 048
  6. ZOLPIDEM [Suspect]
     Active Substance: ZOLPIDEM\ZOLPIDEM TARTRATE
     Dosage: 10 MG, 1X/DAY AT NIGHT
     Route: 048
  7. OLANZAPINE. [Suspect]
     Active Substance: OLANZAPINE
     Dosage: UNK
  8. MULTIVITAMINS [VITAMINS NOS] [Suspect]
     Active Substance: VITAMINS
     Dosage: UNK
  9. GABAPENTIN. [Suspect]
     Active Substance: GABAPENTIN
     Dosage: 400 MG, 3X/DAY
     Route: 048
  10. BUSPIRONE [Suspect]
     Active Substance: BUSPIRONE HYDROCHLORIDE
     Dosage: 100 MG, DAILY
     Route: 048
  11. HALOPERIDOL. [Suspect]
     Active Substance: HALOPERIDOL
     Dosage: 5 MG, 3X/DAY
     Route: 048

REACTIONS (21)
  - Cardiac arrest [Fatal]
  - Serotonin syndrome [Fatal]
  - Hostility [Unknown]
  - Prothrombin time prolonged [Unknown]
  - Anxiety [Unknown]
  - Urinary hesitation [Unknown]
  - Skin abrasion [Unknown]
  - Neuroleptic malignant syndrome [Fatal]
  - Constipation [Unknown]
  - Blood calcium decreased [Unknown]
  - Mental impairment [Unknown]
  - Insomnia [Unknown]
  - Agitation [Unknown]
  - Suicidal ideation [Unknown]
  - Abnormal behaviour [Unknown]
  - Antisocial behaviour [Unknown]
  - Abdominal pain [Unknown]
  - Renal failure [Unknown]
  - Affective disorder [Unknown]
  - Dysuria [Unknown]
  - Lung infiltration [Unknown]

NARRATIVE: CASE EVENT DATE: 2000
